FAERS Safety Report 25491524 (Version 1)
Quarter: 2025Q2

REPORT INFORMATION
  Report Type: Report from Study
  Country: US (occurrence: US)
  Receive Date: 20250629
  Receipt Date: 20250629
  Transmission Date: 20250716
  Serious: Yes (Other)
  Sender: ABBVIE
  Company Number: US-ABBVIE-5889346

PATIENT
  Age: 63 Year
  Sex: Female

DRUGS (4)
  1. SKYRIZI [Suspect]
     Active Substance: RISANKIZUMAB-RZAA
     Indication: Crohn^s disease
     Dosage: FORM STRENGTH: 180MG/1.2M
     Route: 058
     Dates: start: 20240627
  2. SKYRIZI [Suspect]
     Active Substance: RISANKIZUMAB-RZAA
     Indication: Crohn^s disease
     Dosage: WEEK 4 STRENGTH: 600MG/10ML?THEN WEEK 8 AND THEN180MG ON BODY INJECTOR WEEK 12 THEN EVERY 8 WEEKS
     Route: 042
     Dates: start: 20240725, end: 20240725
  3. SKYRIZI [Suspect]
     Active Substance: RISANKIZUMAB-RZAA
     Indication: Crohn^s disease
     Route: 042
     Dates: start: 20240627, end: 20240627
  4. PREDNISONE [Concomitant]
     Active Substance: PREDNISONE
     Indication: Product used for unknown indication
     Route: 048
     Dates: start: 202407

REACTIONS (17)
  - Gastrointestinal scarring [Unknown]
  - Diarrhoea [Recovered/Resolved]
  - Muscle spasms [Unknown]
  - Feeling abnormal [Unknown]
  - Weight increased [Unknown]
  - Weight decreased [Unknown]
  - Fatigue [Unknown]
  - Pain [Unknown]
  - Diarrhoea [Unknown]
  - Vomiting [Recovering/Resolving]
  - Flatulence [Unknown]
  - Insomnia [Unknown]
  - General physical health deterioration [Unknown]
  - Intestinal obstruction [Unknown]
  - Abdominal pain [Unknown]
  - Nausea [Unknown]
  - Abdominal distension [Unknown]

NARRATIVE: CASE EVENT DATE: 20240101
